FAERS Safety Report 25304752 (Version 1)
Quarter: 2025Q2

REPORT INFORMATION
  Report Type: Spontaneous
  Country: FR (occurrence: FR)
  Receive Date: 20250513
  Receipt Date: 20250513
  Transmission Date: 20250716
  Serious: Yes (Hospitalization, Other)
  Sender: CHEPLAPHARM
  Company Number: None

PATIENT
  Age: 21 Year
  Sex: Male

DRUGS (7)
  1. CLONAZEPAM [Suspect]
     Active Substance: CLONAZEPAM
  2. CANNABIS SATIVA SUBSP. INDICA TOP [Suspect]
     Active Substance: CANNABIS SATIVA SUBSP. INDICA TOP
  3. MIDOMAFETAMINE [Suspect]
     Active Substance: MIDOMAFETAMINE
  4. LYRICA [Suspect]
     Active Substance: PREGABALIN
  5. ALCOHOL [Suspect]
     Active Substance: ALCOHOL
  6. DIAZEPAM [Concomitant]
     Active Substance: DIAZEPAM
  7. CYAMEMAZINE [Concomitant]
     Active Substance: CYAMEMAZINE

REACTIONS (7)
  - Substance use disorder [Unknown]
  - Agitation [Recovered/Resolved]
  - Aggression [Recovered/Resolved]
  - Tachycardia [Unknown]
  - Hypertension [Unknown]
  - Self-injurious ideation [Unknown]
  - Physical assault [Unknown]

NARRATIVE: CASE EVENT DATE: 20241217
